FAERS Safety Report 13196681 (Version 1)
Quarter: 2017Q1

REPORT INFORMATION
  Report Type: Report from Study
  Country: US (occurrence: US)
  Receive Date: 20170208
  Receipt Date: 20170208
  Transmission Date: 20170428
  Serious: Yes (Hospitalization, Other)
  Sender: FDA-Public Use
  Company Number: US-GILEAD-2017-0256728

PATIENT
  Age: 55 Year
  Sex: Female

DRUGS (9)
  1. ASPIRIN 81 [Concomitant]
     Active Substance: ASPIRIN
  2. AMBRISENTAN [Suspect]
     Active Substance: AMBRISENTAN
     Indication: PULMONARY HYPERTENSION
     Dosage: 10 MG, QD
     Route: 065
     Dates: start: 20120602
  3. DILTIAZEM. [Concomitant]
     Active Substance: DILTIAZEM
  4. ASACOL [Concomitant]
     Active Substance: MESALAMINE
  5. CUPRIMINE [Concomitant]
     Active Substance: PENICILLAMINE
  6. LYRICA [Concomitant]
     Active Substance: PREGABALIN
  7. HUMIRA [Concomitant]
     Active Substance: ADALIMUMAB
  8. ONGLYZA [Concomitant]
     Active Substance: SAXAGLIPTIN HYDROCHLORIDE
  9. ATORVASTATIN [Concomitant]
     Active Substance: ATORVASTATIN

REACTIONS (1)
  - Small intestinal obstruction [Recovered/Resolved]

NARRATIVE: CASE EVENT DATE: 20170123
